FAERS Safety Report 6297456-9 (Version None)
Quarter: 2009Q3

REPORT INFORMATION
  Report Type: 
  Country: None (occurrence: None)
  Receive Date: 20090804
  Receipt Date: 20090804
  Transmission Date: 20100115
  Serious: Yes (Hospitalization)
  Sender: FDA-Public Use
  Company Number: None

PATIENT
  Age: 73 Year
  Sex: Male
  Weight: 113.3993 kg

DRUGS (10)
  1. ASPIRIN [Suspect]
     Indication: BLOOD CHOLESTEROL
     Dosage: 1 DF, QD, ORAL
     Route: 048
     Dates: start: 20080501
  2. METFORMIN [Concomitant]
  3. GLIPIZIDE [Concomitant]
  4. LOVASTATIN [Concomitant]
  5. OXYBUTYNIN [Concomitant]
  6. TERAZOSIN [Concomitant]
  7. MULTI-VITAMIN [Concomitant]
  8. NATURE MADE VITAMIN B12 [Concomitant]
  9. FLINTSTONES [Concomitant]
  10. OMEPRAZOLE [Concomitant]

REACTIONS (4)
  - ANAEMIA [None]
  - ASTHENIA [None]
  - GASTRIC ULCER HAEMORRHAGE [None]
  - INFLUENZA LIKE ILLNESS [None]
